FAERS Safety Report 13316413 (Version 3)
Quarter: 2017Q1

REPORT INFORMATION
  Report Type: Report from Study
  Country: CA (occurrence: CA)
  Receive Date: 20170310
  Receipt Date: 20170327
  Transmission Date: 20170428
  Serious: Yes (Hospitalization, Other)
  Sender: FDA-Public Use
  Company Number: CA-009507513-1702CAN005889

PATIENT
  Age: 65 Year
  Sex: Female
  Weight: 50 kg

DRUGS (1)
  1. PEMBROLIZUMAB. [Suspect]
     Active Substance: PEMBROLIZUMAB
     Indication: NON-SMALL CELL LUNG CANCER
     Dosage: 100 MG, ONCE EVERY 3 WEEKS
     Route: 042
     Dates: start: 20170127, end: 20170322

REACTIONS (8)
  - Endotracheal intubation [Recovered/Resolved]
  - Complication associated with device [Unknown]
  - Stent placement [Unknown]
  - Clostridium difficile infection [Unknown]
  - Weight decreased [Recovering/Resolving]
  - Hypertension [Recovered/Resolved]
  - Lung neoplasm surgery [Unknown]
  - Dyspnoea [Unknown]

NARRATIVE: CASE EVENT DATE: 2017
